FAERS Safety Report 19103702 (Version 1)
Quarter: 2021Q2

REPORT INFORMATION
  Report Type: Spontaneous
  Country: FR (occurrence: FR)
  Receive Date: 20210407
  Receipt Date: 20210407
  Transmission Date: 20210717
  Serious: Yes (Hospitalization, Other)
  Sender: FDA-Public Use
  Company Number: FR-PFIZER INC-2021339916

PATIENT
  Age: 46 Year
  Sex: Male

DRUGS (10)
  1. DEROXAT [Suspect]
     Active Substance: PAROXETINE HYDROCHLORIDE
     Dosage: 1 DF, QD
     Dates: start: 20201001, end: 20201127
  2. CONTRAMAL [Suspect]
     Active Substance: TRAMADOL HYDROCHLORIDE
     Dosage: 1 DF, 3X/DAY, IF NEED
     Dates: start: 20201001
  3. ZAMUDOL LP [Suspect]
     Active Substance: TRAMADOL HYDROCHLORIDE
     Dosage: 1 DF, 2X/DAY
     Dates: start: 20201001
  4. DALACINE [Suspect]
     Active Substance: CLINDAMYCIN
     Dosage: 2 DF, 3X/DAY (300)
     Dates: start: 20201207, end: 20201217
  5. PRIVIGEN [Suspect]
     Active Substance: HUMAN IMMUNOGLOBULIN G
     Dosage: 20 G, EVERY 3 WEEKS
  6. PARACETAMOL [Suspect]
     Active Substance: ACETAMINOPHEN
     Dosage: 500 MG, IF NEED
     Dates: start: 20201001
  7. SERESTA [Suspect]
     Active Substance: OXAZEPAM
     Dosage: 1 DF, QD
  8. VITAMIN K [Suspect]
     Active Substance: PHYTONADIONE
     Dosage: 10 MG, WE, 10 MG FOR 1 ML 1X/WEEK ON THURSDAY
     Dates: start: 20201001
  9. CEFTRIAXONE. [Suspect]
     Active Substance: CEFTRIAXONE
     Dosage: 1 G
     Dates: start: 20201001, end: 20201009
  10. BACTRIM [Suspect]
     Active Substance: SULFAMETHOXAZOLE\TRIMETHOPRIM
     Dosage: 1/2 TABLET , QD
     Dates: start: 20201001

REACTIONS (7)
  - Staphylococcal infection [Unknown]
  - Pneumonia staphylococcal [Unknown]
  - Hyper IgE syndrome [Unknown]
  - Weight decreased [Unknown]
  - Bacteraemia [Unknown]
  - Gynaecomastia [Unknown]
  - Infection [Unknown]

NARRATIVE: CASE EVENT DATE: 2020
